FAERS Safety Report 10419154 (Version 1)
Quarter: 2014Q2

REPORT INFORMATION
  Report Type: Report from Study
  Country: US (occurrence: None)
  Receive Date: 20140627
  Receipt Date: 20140627
  Transmission Date: 20141212
  Serious: No
  Sender: FDA-Public Use
  Company Number: CABO-14004191

PATIENT
  Age: 65 Year
  Sex: Male
  Weight: 72.3 kg

DRUGS (1)
  1. COMETRIQ [Suspect]
     Indication: THYROID CANCER
     Route: 048
     Dates: start: 10140109, end: 20140424

REACTIONS (3)
  - Laceration [None]
  - Wound dehiscence [None]
  - Impaired healing [None]
